FAERS Safety Report 8811560 (Version 2)
Quarter: 2012Q4

REPORT INFORMATION
  Report Type: 
  Country: BR (occurrence: BR)
  Receive Date: 20120927
  Receipt Date: 20121031
  Transmission Date: 20130627
  Serious: Yes (Other)
  Sender: FDA-Public Use
  Company Number: BR-JNJFOC-20120911945

PATIENT
  Age: 33 None
  Sex: Male
  Weight: 95 kg

DRUGS (4)
  1. XARELTO [Suspect]
     Indication: ATRIAL FIBRILLATION
     Route: 048
     Dates: start: 20120713, end: 20121007
  2. XARELTO [Suspect]
     Indication: ARRHYTHMIA
     Route: 048
     Dates: start: 20120713, end: 20121007
  3. TANDRILAX [Concomitant]
     Indication: ARTHRALGIA
     Route: 048
  4. HERBAL PREPARATION [Concomitant]
     Indication: INSOMNIA
     Route: 048

REACTIONS (3)
  - Blood pressure increased [Not Recovered/Not Resolved]
  - Chest pain [Recovered/Resolved]
  - Neck pain [Recovered/Resolved]
